FAERS Safety Report 17459135 (Version 1)
Quarter: 2020Q1

REPORT INFORMATION
  Report Type: Spontaneous
  Country: US (occurrence: US)
  Receive Date: 20200212
  Receipt Date: 20200212
  Transmission Date: 20200409
  Serious: Yes (Hospitalization, Other)
  Sender: FDA-Public Use
  Company Number: None

PATIENT
  Age: 75 Year

DRUGS (5)
  1. PREDNISONE. [Concomitant]
     Active Substance: PREDNISONE
  2. ENVARSUS XR [Suspect]
     Active Substance: TACROLIMUS
     Indication: RENAL TRANSPLANT
     Dosage: ?          OTHER FREQUENCY:QAM (6AM);?
     Route: 048
     Dates: start: 20191108
  3. ESTRADIOL. [Concomitant]
     Active Substance: ESTRADIOL
  4. RANITIDINE. [Concomitant]
     Active Substance: RANITIDINE
  5. ENVARSUS XR [Suspect]
     Active Substance: TACROLIMUS
     Indication: RENAL TRANSPLANT
     Dosage: ?          OTHER FREQUENCY:QAM (6AM);?
     Route: 048
     Dates: start: 20191108

REACTIONS (1)
  - Skin cancer [None]
